FAERS Safety Report 12633054 (Version 2)
Quarter: 2016Q3

REPORT INFORMATION
  Report Type: Spontaneous
  Country: US (occurrence: US)
  Receive Date: 20160808
  Receipt Date: 20160808
  Transmission Date: 20161109
  Serious: No
  Sender: FDA-Public Use
  Company Number: US-BEH-2016058280

PATIENT
  Sex: Female
  Weight: 108 kg

DRUGS (31)
  1. SINGULAIR [Concomitant]
     Active Substance: MONTELUKAST SODIUM
  2. REMICADE [Concomitant]
     Active Substance: INFLIXIMAB
  3. MAGNESIUM [Concomitant]
     Active Substance: MAGNESIUM
  4. PRADAXA [Concomitant]
     Active Substance: DABIGATRAN ETEXILATE MESYLATE
  5. HIZENTRA [Suspect]
     Active Substance: HUMAN IMMUNOGLOBULIN G
     Indication: IMMUNODEFICIENCY COMMON VARIABLE
     Route: 058
  6. PULMICORT TURBUHALER [Concomitant]
     Active Substance: BUDESONIDE
  7. VITAMIN B [Concomitant]
     Active Substance: VITAMIN B
  8. AMIODARONE [Concomitant]
     Active Substance: AMIODARONE
  9. ACETAMINOPHEN. [Concomitant]
     Active Substance: ACETAMINOPHEN
  10. ASPIRIN. [Concomitant]
     Active Substance: ASPIRIN
  11. SYMBICORT [Concomitant]
     Active Substance: BUDESONIDE\FORMOTEROL FUMARATE DIHYDRATE
  12. EPIPEN [Concomitant]
     Active Substance: EPINEPHRINE
  13. COD LIVER OIL [Concomitant]
     Active Substance: COD LIVER OIL
  14. LIPITOR [Concomitant]
     Active Substance: ATORVASTATIN CALCIUM
  15. KLOR-CON [Concomitant]
     Active Substance: POTASSIUM CHLORIDE
  16. HIZENTRA [Concomitant]
     Active Substance: HUMAN IMMUNOGLOBULIN G
  17. PENTASA [Concomitant]
     Active Substance: MESALAMINE
  18. SLOW MAG [Concomitant]
     Active Substance: MAGNESIUM CHLORIDE
  19. HIZENTRA [Suspect]
     Active Substance: HUMAN IMMUNOGLOBULIN G
     Route: 058
  20. HIZENTRA [Suspect]
     Active Substance: HUMAN IMMUNOGLOBULIN G
  21. FUROSEMIDE. [Concomitant]
     Active Substance: FUROSEMIDE
  22. VENTOLIN [Concomitant]
     Active Substance: ALBUTEROL SULFATE
  23. NEXIUM [Concomitant]
     Active Substance: ESOMEPRAZOLE MAGNESIUM
  24. MULTIVITAMIN [Concomitant]
     Active Substance: VITAMINS
  25. SYNTHROID [Concomitant]
     Active Substance: LEVOTHYROXINE SODIUM
  26. DIPHENHYDRAMINE. [Concomitant]
     Active Substance: DIPHENHYDRAMINE
  27. COREG [Concomitant]
     Active Substance: CARVEDILOL
  28. NASONEX [Concomitant]
     Active Substance: MOMETASONE FUROATE
  29. IRON [Concomitant]
     Active Substance: IRON
  30. VITAMIN D [Concomitant]
     Active Substance: CHOLECALCIFEROL
  31. COQ10 [Concomitant]
     Active Substance: UBIDECARENONE

REACTIONS (1)
  - Urinary tract infection [Unknown]
